FAERS Safety Report 9711135 (Version 1)
Quarter: 2013Q4

REPORT INFORMATION
  Report Type: Spontaneous
  Country: US (occurrence: US)
  Receive Date: 20131126
  Receipt Date: 20131126
  Transmission Date: 20140711
  Serious: No
  Sender: FDA-Public Use
  Company Number: US-BRISTOL-MYERS SQUIBB COMPANY-19156934

PATIENT
  Age: 69 Year
  Sex: Male
  Weight: 68.03 kg

DRUGS (11)
  1. BYETTA [Suspect]
     Indication: TYPE 2 DIABETES MELLITUS
     Dosage: YEAR AND A HALF OR MORE
  2. METFORMIN [Concomitant]
  3. GLIMEPIRIDE [Concomitant]
  4. DILTIAZEM HCL [Concomitant]
  5. LISINOPRIL [Concomitant]
  6. SIMVASTATIN [Concomitant]
  7. ASPIRIN [Concomitant]
  8. MIRTAZAPINE [Concomitant]
  9. METOPROLOL [Concomitant]
  10. FAMOTIDINE [Concomitant]
  11. TAMSULOSIN [Concomitant]

REACTIONS (3)
  - Nausea [Not Recovered/Not Resolved]
  - Decreased appetite [Not Recovered/Not Resolved]
  - Weight decreased [Not Recovered/Not Resolved]
